FAERS Safety Report 7642560-3 (Version None)
Quarter: 2011Q3

REPORT INFORMATION
  Report Type: 
  Country: None (occurrence: None)
  Receive Date: 20110728
  Receipt Date: 20110719
  Transmission Date: 20111222
  Serious: Yes (Hospitalization)
  Sender: FDA-Public Use
  Company Number: IT-TEVA-288957ISR

PATIENT
  Sex: Male

DRUGS (6)
  1. CISPLATIN [Suspect]
     Indication: NON-HODGKIN'S LYMPHOMA REFRACTORY
     Dosage: 180 MILLIGRAM;
     Route: 042
     Dates: start: 20110421, end: 20110421
  2. METFORMIN HCL [Concomitant]
  3. TENORMIN [Concomitant]
  4. CYTARABINE [Suspect]
     Indication: NON-HODGKIN'S LYMPHOMA REFRACTORY
     Dosage: 7176 MG
     Route: 042
     Dates: start: 20110422, end: 20110422
  5. DECADRON [Suspect]
     Indication: NON-HODGKIN'S LYMPHOMA REFRACTORY
     Dosage: 40 MILLIGRAM;
     Dates: start: 20110421, end: 20110424
  6. PRILOSEC [Concomitant]

REACTIONS (4)
  - APLASIA [None]
  - PYREXIA [None]
  - HEPATOTOXICITY [None]
  - MUCOSAL INFLAMMATION [None]
